FAERS Safety Report 14120053 (Version 1)
Quarter: 2017Q4

REPORT INFORMATION
  Report Type: Spontaneous
  Country: US (occurrence: US)
  Receive Date: 20171024
  Receipt Date: 20171024
  Transmission Date: 20180321
  Serious: Yes (Disabling)
  Sender: FDA-Public Use
  Company Number: None

PATIENT
  Age: 52 Year
  Sex: Female
  Weight: 84.15 kg

DRUGS (9)
  1. VITAMIN B12 [Concomitant]
     Active Substance: CYANOCOBALAMIN
  2. IRON [Concomitant]
     Active Substance: IRON
  3. MULTIVITAMINS [Concomitant]
     Active Substance: VITAMINS
  4. VITAMIN B12 [Suspect]
     Active Substance: CYANOCOBALAMIN
  5. BIT D [Concomitant]
  6. VITAMINS [Concomitant]
     Active Substance: VITAMINS
  7. METFORMIN [Concomitant]
     Active Substance: METFORMIN HYDROCHLORIDE
  8. LIPO ^FAT DISSOLVER^ INJECTIONS (METHIONINE, INOSITOL, CHOLINE, B6 AND B12) [Suspect]
     Active Substance: CHOLINE\INOSITOL\METHIONINE\VITAMIN B COMPLEX
  9. LIPO BLAST [Suspect]
     Active Substance: DIETARY SUPPLEMENT
     Indication: WEIGHT DECREASED
     Dosage: ?          QUANTITY:3 INJECTION(S);OTHER FREQUENCY:WEEKLY;?
     Route: 030

REACTIONS (3)
  - Injection site mass [None]
  - Injection site pain [None]
  - Injection site hypoaesthesia [None]

NARRATIVE: CASE EVENT DATE: 20170531
